FAERS Safety Report 14923741 (Version 1)
Quarter: 2018Q2

REPORT INFORMATION
  Report Type: Spontaneous
  Country: AU (occurrence: AU)
  Receive Date: 20180522
  Receipt Date: 20180522
  Transmission Date: 20180711
  Serious: Yes (Hospitalization)
  Sender: FDA-Public Use
  Company Number: AU-PFIZER INC-2018201259

PATIENT
  Age: 67 Year

DRUGS (3)
  1. EFFEXOR XR [Suspect]
     Active Substance: VENLAFAXINE HYDROCHLORIDE
     Dosage: UNK (ONE HALF TABLET EVERY SECOND DAY FOR ANOTHER BOX OF TABLETS)
  2. EFFEXOR XR [Suspect]
     Active Substance: VENLAFAXINE HYDROCHLORIDE
  3. EFFEXOR XR [Suspect]
     Active Substance: VENLAFAXINE HYDROCHLORIDE
     Dosage: UNK, DAILY (HALF TABLET EVERY DAY)

REACTIONS (8)
  - Laceration [Unknown]
  - Mental disorder [Unknown]
  - Vertigo [Unknown]
  - Loss of personal independence in daily activities [Unknown]
  - Fall [Unknown]
  - Clumsiness [Unknown]
  - Thinking abnormal [Unknown]
  - Drug withdrawal syndrome [Unknown]
